FAERS Safety Report 5024287-X (Version None)
Quarter: 2006Q2

REPORT INFORMATION
  Report Type: 
  Country: None (occurrence: None)
  Receive Date: 20060607
  Receipt Date: 20060525
  Transmission Date: 20061013
  Serious: Yes (Life-Threatening, Hospitalization)
  Sender: FDA-Public Use
  Company Number: 2006050060

PATIENT
  Age: 39 Year
  Sex: Male

DRUGS (2)
  1. ZELDOX [Suspect]
     Indication: PSYCHOTIC DISORDER
     Dosage: 100 MG (2 IN 1 D); ORAL
     Route: 048
     Dates: start: 20060326, end: 20060406
  2. ANTIBIOTICS [Concomitant]

REACTIONS (9)
  - BLOOD SODIUM DECREASED [None]
  - CEREBRAL ISCHAEMIA [None]
  - CEREBROVASCULAR ACCIDENT [None]
  - COMA [None]
  - DEPRESSION [None]
  - EPILEPSY [None]
  - GRAND MAL CONVULSION [None]
  - PNEUMONIA [None]
  - PSYCHOTIC DISORDER [None]
